FAERS Safety Report 9154624 (Version 1)
Quarter: 2013Q1

REPORT INFORMATION
  Report Type: Report from Study
  Country: US (occurrence: US)
  Receive Date: 20130311
  Receipt Date: 20130311
  Transmission Date: 20140127
  Serious: No
  Sender: FDA-Public Use
  Company Number: US-ABBOTT-13P-163-1038952-00

PATIENT
  Sex: Female
  Weight: 92.62 kg

DRUGS (3)
  1. LUPRON DEPOT [Suspect]
     Indication: VAGINAL HAEMORRHAGE
     Dates: start: 201204
  2. LUPRON DEPOT [Suspect]
     Indication: VAGINAL HAEMORRHAGE
     Dates: start: 201205
  3. NORETHINDRONE ACETATE [Concomitant]

REACTIONS (2)
  - Vaginal haemorrhage [Recovered/Resolved]
  - Vaginal haemorrhage [Recovered/Resolved]
